FAERS Safety Report 8603367-3 (Version None)
Quarter: 2012Q3

REPORT INFORMATION
  Report Type: 
  Country: None (occurrence: None)
  Receive Date: 20120817
  Receipt Date: 20120813
  Transmission Date: 20120928
  Serious: Yes (Other)
  Sender: FDA-Public Use
  Company Number: DE-UCBSA-063669

PATIENT
  Age: 53 Year
  Sex: Female

DRUGS (2)
  1. KEPPRA [Suspect]
     Dosage: UNKNOWN DOSE
  2. SOTALOL HCL [Suspect]
     Dosage: UNKNOWN DOSE

REACTIONS (3)
  - BRADYCARDIA [None]
  - CHILLS [None]
  - PUPILLARY LIGHT REFLEX TESTS ABNORMAL [None]
